FAERS Safety Report 6120948-X (Version None)
Quarter: 2009Q1

REPORT INFORMATION
  Report Type: 
  Country: None (occurrence: None)
  Receive Date: 20090313
  Receipt Date: 20090219
  Transmission Date: 20090719
  Serious: Yes (Death)
  Sender: FDA-Public Use
  Company Number: 211443

PATIENT
  Age: 47 Year
  Sex: Male
  Weight: 37.3 kg

DRUGS (12)
  1. LEUCOVORIN CALCIUM [Suspect]
     Indication: COLON CANCER
     Dosage: 284 MG, INTRAVENOUS
     Route: 042
     Dates: start: 20080122, end: 20081006
  2. FLUOROURACIL [Suspect]
     Indication: COLON CANCER
     Dosage: 568 MG, INTRAVENOUS
     Route: 042
     Dates: start: 20080122, end: 20081006
  3. IRINOTECAN HYDROCHLORIDE [Suspect]
     Indication: COLON CANCER
     Dosage: 255 MG, INTRAVENOUS
     Route: 042
     Dates: start: 20080122, end: 20081006
  4. (SUNITINIB) [Suspect]
     Indication: COLON CANCER
     Dosage: 37.5 MG, ORAL
     Route: 048
     Dates: start: 20080122, end: 20081006
  5. PANTOPRAZOLE SODIUM [Concomitant]
  6. (DOMPERIDONE) [Concomitant]
  7. CYPROHEPTADINE HCL [Concomitant]
  8. ONDANSETRON [Concomitant]
  9. (GANISETRON) [Concomitant]
  10. DEXAMETHASONE TAB [Concomitant]
  11. TRAMADOL HYDROCHLORIDE [Concomitant]
  12. LOPERAMIDE HCL [Concomitant]

REACTIONS (8)
  - BLOOD CREATININE INCREASED [None]
  - DEHYDRATION [None]
  - DIARRHOEA [None]
  - HAEMOGLOBIN DECREASED [None]
  - MULTI-ORGAN FAILURE [None]
  - NEUTROPENIC SEPSIS [None]
  - PLATELET COUNT INCREASED [None]
  - VOMITING [None]
